FAERS Safety Report 6979540 (Version 3)
Quarter: 2013Q1

REPORT INFORMATION
  Report Type: Report from Study
  Country: GR (occurrence: GR)
  Receive Date: 20090428
  Receipt Date: 20130213
  Transmission Date: 20140127
  Serious: Yes (Death, Other)
  Sender: FDA-Public Use
  Company Number: GR-CELGENEUS-066-21880-09042090

PATIENT
  Sex: 0

DRUGS (6)
  1. REVLIMID [Suspect]
     Indication: AMYLOIDOSIS
     Dosage: LEVEL 0-1: 10MG, LEVEL 2: 15MG, LEVEL 3: 20MG, LEVEL 4: 25MG
     Route: 048
  2. REVLIMID [Suspect]
     Dosage: 15 MILLIGRAM
     Route: 048
  3. REVLIMID [Suspect]
     Dosage: 15 MILLIGRAM
     Route: 048
  4. DEXAMETHASONE [Suspect]
     Indication: AMYLOIDOSIS
     Dosage: 20 MILLIGRAM
     Route: 048
  5. CYCLOPHOSPHAMIDE [Suspect]
     Indication: AMYLOIDOSIS
     Dosage: LEVEL 0: 50MG, LEVEL 1-4: 100MG
     Route: 048
  6. ASPIRIN [Concomitant]
     Indication: THROMBOSIS PROPHYLAXIS
     Dosage: 100 MILLIGRAM
     Route: 065

REACTIONS (21)
  - Amyloidosis [Fatal]
  - Acute myocardial infarction [Fatal]
  - Sudden death [Fatal]
  - Infection [Fatal]
  - Renal impairment [Unknown]
  - Fatigue [Unknown]
  - Diarrhoea [Unknown]
  - Deep vein thrombosis [Unknown]
  - Rash [Unknown]
  - Thrombocytopenia [Unknown]
  - Neutropenia [Unknown]
  - Cerebrovascular accident [Unknown]
  - Hyponatraemia [Unknown]
  - Oedema peripheral [Unknown]
  - Blood creatinine increased [Unknown]
  - Constipation [Unknown]
  - Hypotension [Unknown]
  - Orthostatic hypotension [Unknown]
  - Myalgia [Unknown]
  - Neuropathy peripheral [Unknown]
  - Hypocalcaemia [Unknown]
